FAERS Safety Report 20329936 (Version 1)
Quarter: 2022Q1

REPORT INFORMATION
  Report Type: Other
  Country: US (occurrence: US)
  Receive Date: 20220113
  Receipt Date: 20220113
  Transmission Date: 20220424
  Serious: No
  Sender: FDA-Public Use
  Company Number: US-NEUROCRINE BIOSCIENCES INC.-2021NBI07139

PATIENT

DRUGS (41)
  1. INGREZZA [Suspect]
     Active Substance: VALBENAZINE
     Indication: Tardive dyskinesia
     Dosage: 80 MILLIGRAM, QD, 1 TIMES A DAY
     Route: 048
     Dates: start: 20211027
  2. INGREZZA [Suspect]
     Active Substance: VALBENAZINE
     Dosage: 40 MILLIGRAM, QD
     Route: 048
     Dates: start: 20200421, end: 20211026
  3. HYDROXYZINE HYDROCHLORIDE [Concomitant]
     Active Substance: HYDROXYZINE HYDROCHLORIDE
     Dosage: 50 MILLIGRAM, QID
     Route: 048
     Dates: start: 20211021
  4. DIPHENHYDRAMINE [Concomitant]
     Active Substance: DIPHENHYDRAMINE
     Dosage: 50 MILLIGRAM, QD, AT BEDTIME
     Route: 048
  5. LATUDA [Concomitant]
     Active Substance: LURASIDONE HYDROCHLORIDE
     Dosage: 40 MILLIGRAM, QD, 1 TIME PER DAY WITH FOOD (AT LEAST350 CALORIES)
     Route: 048
  6. LATUDA [Concomitant]
     Active Substance: LURASIDONE HYDROCHLORIDE
     Dosage: 60 MILLIGRAM, QD, 1 TIME PER DAY WITH FOOD (AT LEAST 350 CALORIES)
     Route: 048
  7. LATUDA [Concomitant]
     Active Substance: LURASIDONE HYDROCHLORIDE
     Dosage: 80 MILLIGRAM, QD,  1 TIME PER DAY WITH FOOD (AT LEAST 350 CALORIES)
     Route: 048
  8. LATUDA [Concomitant]
     Active Substance: LURASIDONE HYDROCHLORIDE
     Dosage: 20 MILLIGRAM, QD 1 TIME PER DAY TAKE THIS IN YOUR PACK MEDS
     Route: 048
  9. TRAZODONE [Concomitant]
     Active Substance: TRAZODONE HYDROCHLORIDE
     Dosage: 100 MILLIGRAM, 2 TABLET AT BEDTIME, EACH NIGHT
     Route: 048
  10. CELECOXIB [Concomitant]
     Active Substance: CELECOXIB
     Dosage: 20 MILLIGRAM, QD, 1 TABLET 1 TIMES PER DAY
     Route: 048
  11. TOPAMAX [Concomitant]
     Active Substance: TOPIRAMATE
     Dosage: 25 MILLIGRAM, TID, THREE TIMES A DAY
     Route: 048
  12. RISPERDAL [Concomitant]
     Active Substance: RISPERIDONE
     Dosage: 1 MILLIGRAM, QD, 1 TIMES PER DAY AT BEDTIME
     Route: 048
  13. ZYPREXA [Concomitant]
     Active Substance: OLANZAPINE
     Dosage: 5 MILLIGRAM, QD, 1 TIME PER DAY
     Route: 048
  14. BENZTROPINE MESYLATE [Concomitant]
     Active Substance: BENZTROPINE MESYLATE
     Dosage: 1 MILLIGRAM, BID, 2 TIMES PER DAY
     Route: 048
  15. CELECOXIB [Concomitant]
     Active Substance: CELECOXIB
     Dosage: 20 MILLIGRAM, QD, PER DAILY
     Route: 048
  16. SUCRALFATE [Concomitant]
     Active Substance: SUCRALFATE
     Dosage: 1 MILLIGRAM, TID
     Route: 048
  17. OYSCO [Concomitant]
     Dosage: 1250 MILLIGRAM, QD
     Route: 048
  18. ASPIRIN [Concomitant]
     Active Substance: ASPIRIN
     Dosage: 81 MILLIGRAM, DAILY, CHEWABLE TABLET
     Route: 048
     Dates: start: 20211021
  19. ACETAMINOPHEN [Concomitant]
     Active Substance: ACETAMINOPHEN
     Dosage: 325 MILLIGRAM
     Route: 048
  20. CELEBREX [Concomitant]
     Active Substance: CELECOXIB
     Dosage: 200 MILLIGRAM, QD, DAILY
     Route: 048
  21. MINERALS\VITAMINS [Concomitant]
     Active Substance: MINERALS\VITAMINS
     Dosage: UNK, QD
  22. VITAMIN D3 [Concomitant]
     Active Substance: CHOLECALCIFEROL
     Dosage: 400 MILLIGRAM, BID
     Route: 048
  23. BISACODYL [Concomitant]
     Active Substance: BISACODYL
     Dosage: UNK, 3 TIMES A WEEK
  24. OMEPRAZOLE [Concomitant]
     Active Substance: OMEPRAZOLE
     Dosage: 40 MILLIGRAM
  25. LEVSIN [Concomitant]
     Active Substance: HYOSCYAMINE SULFATE
     Dosage: 1.25 MILLIGRAM, TID
  26. PROPRANOLOL [Concomitant]
     Active Substance: PROPRANOLOL HYDROCHLORIDE
     Dosage: 80 MILLIGRAM, EVERY MORNING
  27. DETROL [Concomitant]
     Active Substance: TOLTERODINE TARTRATE
     Dosage: 2 MILLIGRAM, BID
     Route: 048
  28. POTASSIUM [Concomitant]
     Active Substance: POTASSIUM
     Dosage: 10 MILLIGRAM, QD, DAILY
  29. CLONAZEPAM [Concomitant]
     Active Substance: CLONAZEPAM
     Dosage: 0.5 MILLIGRAM, QD
     Route: 048
     Dates: start: 20211106
  30. CHOLECALCIFEROL [Concomitant]
     Active Substance: CHOLECALCIFEROL
     Dosage: 2000 IU INTERNATIONAL UNIT(S), DAILY
     Route: 048
     Dates: start: 20211021
  31. TOLTERODINE TARTRATE [Concomitant]
     Active Substance: TOLTERODINE TARTRATE
     Dosage: 2 MILLIGRAM, QD, DAILY
     Route: 048
     Dates: start: 20211021
  32. MICRO K [Concomitant]
     Dosage: 10 MILLIGRAM, BEFORE LUNCH
     Route: 048
     Dates: start: 20211021
  33. PANTOPRAZOLE [Concomitant]
     Active Substance: PANTOPRAZOLE
     Dosage: 40 MILLIGRAM, QD
     Route: 048
     Dates: start: 20211021
  34. CALCIUM [Concomitant]
     Active Substance: CALCIUM
     Dosage: 500 MILLIGRAM, BEDTIME
     Route: 048
     Dates: start: 20211021
  35. CITALOPRAM HYDROBROMIDE [Concomitant]
     Active Substance: CITALOPRAM HYDROBROMIDE
     Dosage: 20 MILLIGRAM, QD, DAILY
     Route: 048
     Dates: start: 20211021
  36. BIKTARVY [Concomitant]
     Active Substance: BICTEGRAVIR SODIUM\EMTRICITABINE\TENOFOVIR ALAFENAMIDE FUMARATE
     Dosage: 50-200-50 MILLIGRAM, 1 EACH BEDTIME
     Route: 048
     Dates: start: 20211021
  37. BANOPHEN DECONGESTANT [Concomitant]
     Dosage: 50 MILLIGRAM, BEDTIME
     Route: 048
     Dates: start: 20210706
  38. PROAIR HFA [Concomitant]
     Active Substance: ALBUTEROL SULFATE
     Dosage: 8.5 MILLIGRAM, 2 PUFF INHALATION, EVERY 6 HR
     Dates: start: 20210705
  39. INFLUENZA VIRUS VACCINE [Concomitant]
     Active Substance: INFLUENZA VIRUS VACCINE
     Dosage: UNK
     Dates: start: 20211022
  40. PNEUMOCOCCAL VACCINE POLYVALENT NOS [Concomitant]
     Active Substance: PNEUMOCOCCAL VACCINE POLYVALENT
     Dosage: UNK
     Dates: start: 20211022
  41. HYDROXYZINE PAMOATE [Concomitant]
     Active Substance: HYDROXYZINE PAMOATE
     Dosage: 50 MILLIGRAM, QID
     Route: 048
     Dates: start: 20211021

REACTIONS (3)
  - Restless legs syndrome [Unknown]
  - Anxiety [Unknown]
  - Intentional overdose [Unknown]

NARRATIVE: CASE EVENT DATE: 20210101
